FAERS Safety Report 24446483 (Version 1)
Quarter: 2024Q4

REPORT INFORMATION
  Report Type: Spontaneous
  Country: CN (occurrence: CN)
  Receive Date: 20241016
  Receipt Date: 20241016
  Transmission Date: 20250115
  Serious: Yes (Other)
  Sender: GLAND PHARMA LTD
  Company Number: CN-GLANDPHARMA-CN-2024GLNLIT00865

PATIENT
  Age: 56 Year
  Sex: Female

DRUGS (8)
  1. GEMCITABINE [Suspect]
     Active Substance: GEMCITABINE
     Indication: Gallbladder cancer
     Route: 065
     Dates: start: 20190619, end: 20190914
  2. GEMCITABINE [Suspect]
     Active Substance: GEMCITABINE
     Route: 065
     Dates: start: 20190914, end: 20191108
  3. PACLITAXEL [Suspect]
     Active Substance: PACLITAXEL
     Indication: Gallbladder cancer stage IV
     Route: 065
     Dates: start: 20190619, end: 20190914
  4. PACLITAXEL [Suspect]
     Active Substance: PACLITAXEL
     Route: 065
     Dates: start: 20190914, end: 20191108
  5. PEMBROLIZUMAB [Suspect]
     Active Substance: PEMBROLIZUMAB
     Indication: Gallbladder cancer stage IV
     Route: 065
     Dates: start: 20190914, end: 20191108
  6. OLAPARIB [Concomitant]
     Active Substance: OLAPARIB
     Indication: Gallbladder cancer stage IV
     Route: 065
     Dates: start: 20200929
  7. DURVALUMAB [Concomitant]
     Active Substance: DURVALUMAB
     Indication: Gallbladder cancer stage IV
     Route: 065
     Dates: start: 20200929
  8. GIMERACIL\OTERACIL\TEGAFUR [Concomitant]
     Active Substance: GIMERACIL\OTERACIL POTASSIUM\TEGAFUR
     Indication: Gallbladder cancer stage IV
     Route: 065
     Dates: start: 20200520, end: 20200724

REACTIONS (5)
  - Pelvic venous thrombosis [Unknown]
  - Agranulocytosis [Unknown]
  - Myelosuppression [Unknown]
  - Pyrexia [Unknown]
  - Product use in unapproved indication [Unknown]
